FAERS Safety Report 17808323 (Version 1)
Quarter: 2020Q2

REPORT INFORMATION
  Report Type: Report from Study
  Country: US (occurrence: US)
  Receive Date: 20200520
  Receipt Date: 20200520
  Transmission Date: 20200714
  Serious: Yes (Hospitalization, Other)
  Sender: FDA-Public Use
  Company Number: US-ROCHE-2596335

PATIENT
  Sex: Female
  Weight: 27.4 kg

DRUGS (1)
  1. NUTROPIN AQ [Suspect]
     Active Substance: SOMATROPIN
     Indication: CHRONIC KIDNEY DISEASE
     Route: 058

REACTIONS (5)
  - Congenital cystic kidney disease [Unknown]
  - Off label use [Unknown]
  - Appendicitis [Recovered/Resolved]
  - Biopsy kidney [Unknown]
  - Intentional product use issue [Unknown]
